FAERS Safety Report 11406261 (Version 6)
Quarter: 2015Q4

REPORT INFORMATION
  Report Type: Spontaneous
  Country: JP (occurrence: JP)
  Receive Date: 20150821
  Receipt Date: 20151217
  Transmission Date: 20160304
  Serious: Yes (Hospitalization, Other)
  Sender: FDA-Public Use
  Company Number: PHJP2015JP014176

PATIENT
  Sex: Female
  Weight: 62 kg

DRUGS (6)
  1. VOLTAREN SUP [Suspect]
     Active Substance: DICLOFENAC SODIUM
     Indication: UTERINE HYPERTONUS
     Dosage: UNK
     Route: 065
  2. MAGNESIUM [Suspect]
     Active Substance: MAGNESIUM
     Indication: BRADYCARDIA
  3. UTERON INTRAVENOUS INFUSION [Suspect]
     Active Substance: RITODRINE HYDROCHLORIDE
     Indication: UTERINE CONTRACTIONS DURING PREGNANCY
     Dosage: UNK
     Route: 065
  4. MAGNESIUM [Suspect]
     Active Substance: MAGNESIUM
     Indication: UTERINE CONTRACTIONS DURING PREGNANCY
     Dosage: UNK
     Route: 065
  5. UTERON INTRAVENOUS INFUSION [Suspect]
     Active Substance: RITODRINE HYDROCHLORIDE
     Indication: BRADYCARDIA
  6. LEVOTHYROXINE. [Suspect]
     Active Substance: LEVOTHYROXINE
     Indication: HYPOTHYROIDISM
     Dosage: UNK
     Route: 048

REACTIONS (5)
  - Stillbirth [Unknown]
  - Drug ineffective [Unknown]
  - Premature delivery [Unknown]
  - Off label use [Unknown]
  - Maternal exposure during pregnancy [Unknown]
